FAERS Safety Report 9186198 (Version 1)
Quarter: 2013Q1

REPORT INFORMATION
  Report Type: Spontaneous
  Country: US (occurrence: US)
  Receive Date: 20130325
  Receipt Date: 20130325
  Transmission Date: 20140127
  Serious: Yes (Other)
  Sender: FDA-Public Use
  Company Number: US-GLAXOSMITHKLINE-A1016921A

PATIENT
  Age: 56 Year
  Sex: Female
  Weight: 86.4 kg

DRUGS (8)
  1. VOTRIENT [Suspect]
     Indication: PRODUCT USED FOR UNKNOWN INDICATION
     Dosage: 800MG PER DAY
     Route: 048
  2. GABAPENTIN [Concomitant]
  3. CARVEDILOL [Concomitant]
  4. MORPHINE SULFATE [Concomitant]
  5. SYMBICORT [Concomitant]
  6. VITAMIN D3 [Concomitant]
  7. CALCIUM + MAGNESIUM [Concomitant]
  8. MORPHINE SULPHATE SLOW RELEASE [Concomitant]

REACTIONS (2)
  - Cardiac flutter [Recovered/Resolved]
  - Fatigue [Unknown]
